FAERS Safety Report 21830601 (Version 1)
Quarter: 2023Q1

REPORT INFORMATION
  Report Type: Spontaneous
  Country: US (occurrence: None)
  Receive Date: 20230106
  Receipt Date: 20230106
  Transmission Date: 20230417
  Serious: Yes (Death, Hospitalization)
  Sender: FDA-Public Use
  Company Number: None

PATIENT
  Sex: Male
  Weight: 110 kg

DRUGS (4)
  1. MERCAPTOPURINE [Suspect]
     Active Substance: MERCAPTOPURINE
     Dates: end: 20221022
  2. METHOTREXATE [Suspect]
     Active Substance: METHOTREXATE
     Dates: end: 20221013
  3. PREDNISOLONE [Suspect]
     Active Substance: PREDNISOLONE
     Dates: end: 20221003
  4. VINCRISTINE SULFATE [Suspect]
     Active Substance: VINCRISTINE SULFATE
     Dates: end: 20220929

REACTIONS (13)
  - Multiple organ dysfunction syndrome [None]
  - Oropharyngeal pain [None]
  - Body temperature increased [None]
  - White blood cell count decreased [None]
  - Neutrophil count decreased [None]
  - Coronavirus test positive [None]
  - Tonsillitis [None]
  - Infection [None]
  - Acute kidney injury [None]
  - Hepatitis B virus test positive [None]
  - Herpes simplex test positive [None]
  - Herpes simplex [None]
  - Hypotension [None]

NARRATIVE: CASE EVENT DATE: 20221020
